FAERS Safety Report 6042119-8 (Version None)
Quarter: 2009Q1

REPORT INFORMATION
  Report Type: 
  Country: None (occurrence: None)
  Receive Date: 20090116
  Receipt Date: 20090113
  Transmission Date: 20090719
  Serious: Yes (Death)
  Sender: FDA-Public Use
  Company Number: PHBS2009IN00506

PATIENT
  Age: 67 Year
  Sex: Female

DRUGS (6)
  1. CYCLOSPORINE [Suspect]
     Indication: APLASTIC ANAEMIA
     Dosage: 10 MG/KG/DAY
  2. ANTI-THYMOCYTE GLOBULIN NOS [Concomitant]
     Indication: APLASTIC ANAEMIA
     Dosage: 40 MG/KG/DAY
  3. PREDNISOLONE [Concomitant]
     Indication: APLASTIC ANAEMIA
     Dosage: 1 MG/KG/DAY, TAPERED OVER 3 WEEKS
  4. AMLODIPINE BESYLATE [Concomitant]
     Indication: HYPERTENSION
  5. ATENOLOL [Concomitant]
     Indication: HYPERTENSION
  6. TRANSFUSIONS [Concomitant]
     Indication: APLASTIC ANAEMIA

REACTIONS (2)
  - ABDOMINAL PAIN [None]
  - CARDIAC DEATH [None]
